FAERS Safety Report 16692066 (Version 3)
Quarter: 2019Q4

REPORT INFORMATION
  Report Type: Spontaneous
  Country: RO (occurrence: RO)
  Receive Date: 20190812
  Receipt Date: 20191009
  Transmission Date: 20200122
  Serious: Yes (Other)
  Sender: FDA-Public Use
  Company Number: US-ALLERGAN-1932068US

PATIENT
  Sex: Female

DRUGS (5)
  1. BETMIGA [Suspect]
     Active Substance: MIRABEGRON
     Indication: HYPERTONIC BLADDER
     Dosage: 50 UNK
     Route: 048
  2. SILODOSIN - BP [Suspect]
     Active Substance: SILODOSIN
     Indication: HYPERTONIC BLADDER
     Dosage: 8 MG, QD
     Route: 048
  3. BETMIGA [Suspect]
     Active Substance: MIRABEGRON
     Dosage: 25 MG, QD
     Route: 048
  4. OMNIC TOCAS [Suspect]
     Active Substance: TAMSULOSIN HYDROCHLORIDE
     Indication: HYPERTONIC BLADDER
     Dosage: 0.4 MG, QHS
     Dates: start: 20181212
  5. SILODOSIN - BP [Suspect]
     Active Substance: SILODOSIN
     Dosage: 4 MG, QD
     Route: 048
     Dates: end: 20181212

REACTIONS (6)
  - Urinary retention [Unknown]
  - Nausea [Recovered/Resolved]
  - Hypertension [Recovered/Resolved]
  - Off label use [Unknown]
  - Intentional product use issue [Unknown]
  - Vertigo [Recovered/Resolved]
